FAERS Safety Report 7320675-7 (Version None)
Quarter: 2011Q1

REPORT INFORMATION
  Report Type: 
  Country: None (occurrence: None)
  Receive Date: 20110228
  Receipt Date: 20110216
  Transmission Date: 20110831
  Serious: Yes (Other)
  Sender: FDA-Public Use
  Company Number: JP-SANOFI-AVENTIS-2011SA010564

PATIENT
  Sex: Female

DRUGS (4)
  1. CISPLATIN [Suspect]
     Indication: UTERINE CANCER
  2. DOCETAXEL [Suspect]
  3. PACLITAXEL [Suspect]
     Indication: UTERINE CANCER
  4. ADRIAMYCIN PFS [Suspect]
     Indication: UTERINE CANCER

REACTIONS (1)
  - MAJOR DEPRESSION [None]
